FAERS Safety Report 16932724 (Version 1)
Quarter: 2019Q4

REPORT INFORMATION
  Report Type: Report from Study
  Country: FR (occurrence: FR)
  Receive Date: 20191018
  Receipt Date: 20191018
  Transmission Date: 20200122
  Serious: Yes (Hospitalization)
  Sender: FDA-Public Use
  Company Number: FR-ROCHE-2432366

PATIENT
  Age: 60 Year
  Sex: Female
  Weight: 102 kg

DRUGS (3)
  1. ATEZOLIZUMAB. [Suspect]
     Active Substance: ATEZOLIZUMAB
     Indication: LYMPHOMA
     Dosage: 1200 MG ON DAY 2 OF EACH 21-DAY CYCLE DURING 18 MONTHS (24 CYCLES)?LAST DOSE ADMINISTERED ON: 11/JUL
     Route: 065
     Dates: start: 20190523
  2. VENETOCLAX. [Suspect]
     Active Substance: VENETOCLAX
     Indication: LYMPHOMA
     Dosage: DURING 18 MONTHS.?LAST DOSE ADMINISTERED ON: 15/JUL/2019
     Route: 065
     Dates: start: 20190529
  3. OBINUTUZUMAB. [Suspect]
     Active Substance: OBINUTUZUMAB
     Indication: LYMPHOMA
     Dosage: 1000 MG ON DAY 1, DAY 8 AND DAY 15 OF CYCLE 1 AND EACH DAY 1 FROM CYCLE 2 TO CYCLE 8?LAST DOSE ADMIN
     Route: 065
     Dates: start: 20190522

REACTIONS (1)
  - Febrile bone marrow aplasia [Recovered/Resolved with Sequelae]

NARRATIVE: CASE EVENT DATE: 20190715
